FAERS Safety Report 24730115 (Version 1)
Quarter: 2024Q4

REPORT INFORMATION
  Report Type: Report from Study
  Country: US (occurrence: US)
  Receive Date: 20241213
  Receipt Date: 20241213
  Transmission Date: 20250114
  Serious: Yes (Death, Hospitalization)
  Sender: BAUSCH AND LOMB
  Company Number: US-BAUSCH-BL-2024-018132

PATIENT
  Age: 70 Year
  Sex: Male

DRUGS (1)
  1. XIFAXAN [Suspect]
     Active Substance: RIFAXIMIN
     Indication: Product used for unknown indication
     Dosage: BID
     Route: 048
     Dates: end: 20240923

REACTIONS (5)
  - Pneumonia fungal [Fatal]
  - Hepatic cirrhosis [Fatal]
  - Liver transplant [Fatal]
  - Hospitalisation [Unknown]
  - Intentional product use issue [Unknown]
